FAERS Safety Report 10537490 (Version 1)
Quarter: 2014Q4

REPORT INFORMATION
  Report Type: Spontaneous
  Country: US (occurrence: None)
  Receive Date: 20141022
  Receipt Date: 20141022
  Transmission Date: 20150529
  Serious: Yes (Death, Life-Threatening, Hospitalization)
  Sender: FDA-Public Use
  Company Number: None

PATIENT
  Age: 56 Year
  Sex: Male
  Weight: 82 kg

DRUGS (6)
  1. SERTRALINE ( ZOLOFT) [Concomitant]
  2. IPILIMUMAB [Suspect]
     Active Substance: IPILIMUMAB
     Indication: METASTATIC MALIGNANT MELANOMA
     Dosage: 294 MG EVERY 3 WEEKS INTRAVENOUS
     Route: 042
     Dates: start: 20140603, end: 20140630
  3. OXYCODONE [Concomitant]
     Active Substance: OXYCODONE
  4. ONDANSETRON ( ZOFRAN ODT) [Concomitant]
  5. YERVOY [Concomitant]
     Active Substance: IPILIMUMAB
  6. MORPHINE [Concomitant]
     Active Substance: MORPHINE

REACTIONS (1)
  - Clostridium difficile colitis [None]

NARRATIVE: CASE EVENT DATE: 20140630
